FAERS Safety Report 22329399 (Version 2)
Quarter: 2023Q2

REPORT INFORMATION
  Report Type: Spontaneous
  Country: US (occurrence: US)
  Receive Date: 20230517
  Receipt Date: 20230525
  Transmission Date: 20230722
  Serious: Yes (Other)
  Sender: FDA-Public Use
  Company Number: US-BAXTER-2023BAX021540

PATIENT
  Age: 42 Year
  Sex: Male

DRUGS (1)
  1. KETOROLAC [Suspect]
     Active Substance: KETOROLAC TROMETHAMINE
     Dosage: ONE DOSE DURING THE PROCEDURE
     Route: 065

REACTIONS (4)
  - Renal tubular necrosis [Recovered/Resolved]
  - Glomerulonephritis [Recovered/Resolved]
  - Tubulointerstitial nephritis [Recovered/Resolved]
  - Renal disorder [Recovered/Resolved]
